FAERS Safety Report 7759204-2 (Version None)
Quarter: 2011Q3

REPORT INFORMATION
  Report Type: 
  Country: None (occurrence: None)
  Receive Date: 20110919
  Receipt Date: 20110913
  Transmission Date: 20111222
  Serious: Yes (Life-Threatening, Hospitalization, Other)
  Sender: FDA-Public Use
  Company Number: GB-ASTRAZENECA-2011SE44472

PATIENT
  Age: 32 Year
  Sex: Female
  Weight: 104 kg

DRUGS (2)
  1. CLOZAPINE [Suspect]
     Indication: SCHIZOPHRENIA
     Route: 048
     Dates: start: 20110329
  2. QUETIAPINE [Suspect]
     Route: 048

REACTIONS (5)
  - RESPIRATORY DISORDER [None]
  - DYSPNOEA [None]
  - ASTHMA [None]
  - PULMONARY EMBOLISM [None]
  - SCHIZOPHRENIA [None]
